FAERS Safety Report 18309536 (Version 2)
Quarter: 2020Q4

REPORT INFORMATION
  Report Type: Spontaneous
  Country: US (occurrence: US)
  Receive Date: 20200924
  Receipt Date: 20201021
  Transmission Date: 20210113
  Serious: Yes (Hospitalization, Other)
  Sender: FDA-Public Use
  Company Number: US-TEVA-2020-US-1829799

PATIENT
  Age: 9 Year
  Sex: Male

DRUGS (8)
  1. PREDNISOLONE ACETATE. [Suspect]
     Active Substance: PREDNISOLONE ACETATE
     Indication: CORNEAL ABRASION
  2. PREDNISOLONE ACETATE. [Suspect]
     Active Substance: PREDNISOLONE ACETATE
     Indication: EYE ULCER
     Dosage: EYE DROPS
     Route: 047
  3. AZITHROMYCIN ANHYDROUS. [Suspect]
     Active Substance: AZITHROMYCIN ANHYDROUS
     Indication: PNEUMONIA MYCOPLASMAL
     Dosage: 5 MG/KG DAILY;
     Route: 065
  4. ERYTHROMYCIN. [Concomitant]
     Active Substance: ERYTHROMYCIN
     Indication: CORNEAL ABRASION
  5. IMMUNE GLOBULIN [Concomitant]
     Indication: MUCOSAL INFLAMMATION
     Dosage: 2 MG/KG DIVIDED OVER 3 DAYS
     Route: 042
  6. IMMUNE GLOBULIN [Concomitant]
     Indication: SKIN LESION
  7. ERYTHROMYCIN. [Concomitant]
     Active Substance: ERYTHROMYCIN
     Indication: EYE ULCER
     Route: 061
  8. CEFTRIAXONE. [Suspect]
     Active Substance: CEFTRIAXONE
     Indication: PNEUMONIA MYCOPLASMAL
     Dosage: 100 MG/KG DAILY;
     Route: 065

REACTIONS (4)
  - Swelling face [Recovered/Resolved]
  - Impaired healing [Recovered/Resolved]
  - Skin striae [Recovered/Resolved]
  - Drug ineffective [Unknown]
